FAERS Safety Report 5417404-0 (Version None)
Quarter: 2007Q3

REPORT INFORMATION
  Report Type: 
  Country: None (occurrence: None)
  Receive Date: 20070718
  Receipt Date: 20070417
  Transmission Date: 20080115
  Serious: Yes (Other)
  Sender: FDA-Public Use
  Company Number: 2005094680

PATIENT
  Age: 62 Year
  Sex: Female
  Weight: 63.5 kg

DRUGS (6)
  1. CELEBREX [Suspect]
     Indication: INTERVERTEBRAL DISC DEGENERATION
     Dosage: ORAL
     Route: 048
  2. CELEBREX [Suspect]
     Indication: INTERVERTEBRAL DISC PROTRUSION
     Dosage: ORAL
     Route: 048
  3. CELEBREX [Suspect]
     Indication: NERVE COMPRESSION
     Dosage: ORAL
     Route: 048
  4. CELEBREX [Suspect]
     Indication: OSTEOARTHRITIS
     Dosage: ORAL
     Route: 048
  5. CELEBREX [Suspect]
     Indication: OSTEOPOROSIS
     Dosage: ORAL
     Route: 048
  6. FOSAMAX [Concomitant]

REACTIONS (4)
  - DRUG EFFECT DECREASED [None]
  - DYSPNOEA [None]
  - RASH [None]
  - ULCER HAEMORRHAGE [None]
